FAERS Safety Report 6519315-6 (Version None)
Quarter: 2009Q4

REPORT INFORMATION
  Report Type: 
  Country: None (occurrence: None)
  Receive Date: 20091228
  Receipt Date: 20091218
  Transmission Date: 20100525
  Serious: Yes (Hospitalization)
  Sender: FDA-Public Use
  Company Number: US-ABBOTT-09P-163-0611741-00

PATIENT
  Sex: Female
  Weight: 77.18 kg

DRUGS (4)
  1. HUMIRA [Suspect]
     Indication: RHEUMATOID ARTHRITIS
     Dates: start: 20060101
  2. HUMIRA [Suspect]
     Dates: start: 20091001
  3. PREDNISONE [Concomitant]
     Indication: RHEUMATOID ARTHRITIS
  4. ULTRAM [Concomitant]
     Indication: PAIN

REACTIONS (4)
  - MOBILITY DECREASED [None]
  - SEPSIS [None]
  - URINARY TRACT INFECTION [None]
  - VIRAL INFECTION [None]
